FAERS Safety Report 9867628 (Version 1)
Quarter: 2014Q1

REPORT INFORMATION
  Report Type: Spontaneous
  Country: GB (occurrence: GB)
  Receive Date: 20140204
  Receipt Date: 20140204
  Transmission Date: 20141002
  Serious: Yes (Other)
  Sender: FDA-Public Use
  Company Number: GB-009507513-1401GBR014494

PATIENT
  Age: 47 Year
  Sex: Male
  Weight: 69 kg

DRUGS (3)
  1. MIRTAZAPINE [Suspect]
     Dosage: UNKNOWN
     Route: 048
     Dates: start: 20140117
  2. FLUOXETINE [Concomitant]
     Dosage: UNK
     Dates: start: 20131007
  3. RANITIDINE [Concomitant]
     Dosage: UNK
     Dates: start: 20131007, end: 20140108

REACTIONS (2)
  - Restless legs syndrome [Recovered/Resolved]
  - Condition aggravated [Recovered/Resolved]
